FAERS Safety Report 18419254 (Version 1)
Quarter: 2020Q4

REPORT INFORMATION
  Report Type: Spontaneous
  Country: US (occurrence: US)
  Receive Date: 20201023
  Receipt Date: 20201023
  Transmission Date: 20210114
  Serious: No
  Sender: FDA-Public Use
  Company Number: None

PATIENT
  Age: 49 Year
  Sex: Female

DRUGS (1)
  1. ZARXIO [Suspect]
     Active Substance: FILGRASTIM-SNDZ
     Dosage: ?          OTHER FREQUENCY:DAILY ON SUNDAY MO;?
     Route: 058
     Dates: start: 202010, end: 202010

REACTIONS (4)
  - Pain [None]
  - Dyspnoea [None]
  - Micturition urgency [None]
  - Headache [None]

NARRATIVE: CASE EVENT DATE: 20201007
